FAERS Safety Report 7569571-0 (Version None)
Quarter: 2011Q2

REPORT INFORMATION
  Report Type: 
  Country: None (occurrence: None)
  Receive Date: 20110622
  Receipt Date: 20110622
  Transmission Date: 20111010
  Serious: Yes (Other)
  Sender: FDA-Public Use
  Company Number: None

PATIENT
  Age: 63 Year
  Sex: Male
  Weight: 122.4712 kg

DRUGS (1)
  1. PRADAXA [Suspect]
     Indication: COAGULOPATHY
     Dosage: 1 CAPSULE TWICE A DAY PO
     Route: 048
     Dates: start: 20110616, end: 20110618

REACTIONS (4)
  - DYSPEPSIA [None]
  - CHEST PAIN [None]
  - CHEST DISCOMFORT [None]
  - DISCOMFORT [None]
